FAERS Safety Report 15475130 (Version 1)
Quarter: 2018Q4

REPORT INFORMATION
  Report Type: Spontaneous
  Country: US (occurrence: US)
  Receive Date: 20181008
  Receipt Date: 20181008
  Transmission Date: 20190205
  Serious: No
  Sender: FDA-Public Use
  Company Number: US-SA-2018SA272915

PATIENT
  Sex: Female

DRUGS (1)
  1. XYZAL ALLERGY 24HR [Suspect]
     Active Substance: LEVOCETIRIZINE DIHYDROCHLORIDE
     Indication: RESPIRATORY DISORDER
     Dosage: UNK UNK, UNK
     Route: 065
     Dates: start: 201803

REACTIONS (4)
  - Feeling abnormal [Unknown]
  - Sensory disturbance [Unknown]
  - Withdrawal syndrome [Unknown]
  - Paraesthesia [Recovering/Resolving]
